FAERS Safety Report 9643982 (Version 3)
Quarter: 2014Q1

REPORT INFORMATION
  Report Type: Spontaneous
  Country: MX (occurrence: None)
  Receive Date: 20131023
  Receipt Date: 20140214
  Transmission Date: 20141002
  Serious: Yes (Death, Other)
  Sender: FDA-Public Use
  Company Number: 2013AP009151

PATIENT
  Sex: Female

DRUGS (1)
  1. CARBAMAZEPINE [Suspect]

REACTIONS (7)
  - Multi-organ failure [None]
  - Pulmonary hypertension [None]
  - Neutropenia [None]
  - Foetal anticonvulsant syndrome [None]
  - Foetal exposure during pregnancy [None]
  - Respiratory alkalosis [None]
  - Caesarean section [None]
